FAERS Safety Report 10481840 (Version 1)
Quarter: 2014Q3

REPORT INFORMATION
  Report Type: Spontaneous
  Country: DE (occurrence: DE)
  Receive Date: 20140929
  Receipt Date: 20140929
  Transmission Date: 20150326
  Serious: Yes (Hospitalization)
  Sender: FDA-Public Use
  Company Number: PHHY2014DE124077

PATIENT
  Sex: Male

DRUGS (2)
  1. VOLTAREN RESINAT [Suspect]
     Active Substance: DICLOFENAC
     Dosage: 75 MG, 1 DF QD
  2. VOLTAREN RESINAT [Suspect]
     Active Substance: DICLOFENAC
     Indication: ARTHRITIS
     Dosage: 75 MG, 1 DF QD
     Route: 048

REACTIONS (2)
  - Anuria [Not Recovered/Not Resolved]
  - Blood creatinine increased [Unknown]
